FAERS Safety Report 4796269-4 (Version None)
Quarter: 2005Q4

REPORT INFORMATION
  Report Type: 
  Country: None (occurrence: None)
  Receive Date: 20051007
  Receipt Date: 20050830
  Transmission Date: 20060501
  Serious: Yes (Hospitalization)
  Sender: FDA-Public Use
  Company Number: 217293

PATIENT
  Age: 53 Year
  Sex: Female
  Weight: 76.2 kg

DRUGS (1)
  1. AVASTIN [Suspect]
     Indication: OVARIAN CANCER
     Dosage: 730 UNK, Q2W, INTRAVENOUS
     Route: 042
     Dates: start: 20050728

REACTIONS (2)
  - FEMALE GENITAL TRACT FISTULA [None]
  - VAGINAL HAEMORRHAGE [None]
